FAERS Safety Report 12012433 (Version 2)
Quarter: 2016Q2

REPORT INFORMATION
  Report Type: Spontaneous
  Country: US (occurrence: US)
  Receive Date: 20160205
  Receipt Date: 20160419
  Transmission Date: 20160815
  Serious: Yes (Hospitalization, Other)
  Sender: FDA-Public Use
  Company Number: US-ELI_LILLY_AND_COMPANY-US201602001239

PATIENT
  Age: 57 Year
  Sex: Male
  Weight: 117 kg

DRUGS (17)
  1. AXIRON [Suspect]
     Active Substance: TESTOSTERONE
     Indication: ERECTILE DYSFUNCTION
  2. TOPROL XL [Concomitant]
     Active Substance: METOPROLOL SUCCINATE
     Indication: HYPERTENSION
     Dosage: UNK
     Route: 065
     Dates: start: 1999
  3. CRESTOR [Concomitant]
     Active Substance: ROSUVASTATIN CALCIUM
     Indication: BLOOD CHOLESTEROL INCREASED
     Dosage: UNK
     Route: 065
     Dates: start: 2012
  4. ANDRODERM [Suspect]
     Active Substance: TESTOSTERONE
     Indication: HYPOGONADISM MALE
  5. FISH OIL [Concomitant]
     Active Substance: FISH OIL
     Indication: BLOOD CHOLESTEROL INCREASED
     Dosage: UNK
     Route: 065
     Dates: start: 199903
  6. NIASPAN [Concomitant]
     Active Substance: NIACIN
     Indication: DYSLIPIDAEMIA
     Dosage: UNK
     Route: 065
     Dates: start: 2007, end: 2014
  7. ANDRODERM [Suspect]
     Active Substance: TESTOSTERONE
     Indication: ERECTILE DYSFUNCTION
  8. AXIRON [Suspect]
     Active Substance: TESTOSTERONE
     Indication: BLOOD TESTOSTERONE DECREASED
     Dosage: UNK, UNKNOWN
     Route: 062
     Dates: start: 20120323, end: 20120831
  9. ANDRODERM [Suspect]
     Active Substance: TESTOSTERONE
     Indication: BLOOD TESTOSTERONE DECREASED
     Dosage: 5 MG, 5/W
     Dates: start: 20111223, end: 201203
  10. BUPROPION. [Concomitant]
     Active Substance: BUPROPION
     Indication: SMOKING CESSATION THERAPY
     Dosage: UNK
     Route: 065
     Dates: start: 2010, end: 2011
  11. GABAPENTIN. [Concomitant]
     Active Substance: GABAPENTIN
     Indication: NEUROPATHY PERIPHERAL
     Dosage: UNK
     Route: 065
     Dates: start: 2011, end: 2012
  12. VYTORIN [Concomitant]
     Active Substance: EZETIMIBE\SIMVASTATIN
     Indication: DYSLIPIDAEMIA
     Dosage: UNK
     Route: 065
     Dates: start: 2006, end: 2011
  13. AXIRON [Suspect]
     Active Substance: TESTOSTERONE
     Indication: HYPOGONADISM MALE
     Dosage: UNK, UNKNOWN
     Route: 062
     Dates: start: 20121101, end: 201303
  14. LOSARTAN. [Concomitant]
     Active Substance: LOSARTAN
     Indication: HYPERTENSION
     Dosage: UNK
     Route: 065
     Dates: start: 1999
  15. BABY ASPIRIN [Concomitant]
     Active Substance: ASPIRIN
     Indication: ANTICOAGULANT THERAPY
     Dosage: UNK
     Route: 065
     Dates: start: 1999
  16. ZETIA [Concomitant]
     Active Substance: EZETIMIBE
     Indication: BLOOD CHOLESTEROL INCREASED
     Dosage: UNK
     Route: 065
     Dates: start: 2012
  17. NEXIUM [Concomitant]
     Active Substance: ESOMEPRAZOLE MAGNESIUM
     Indication: GASTROOESOPHAGEAL REFLUX DISEASE
     Dosage: UNK
     Route: 065
     Dates: start: 2011

REACTIONS (4)
  - Myocardial infarction [Unknown]
  - Arterial rupture [Unknown]
  - Coronary artery occlusion [Unknown]
  - Left ventricular dysfunction [Unknown]

NARRATIVE: CASE EVENT DATE: 20130301
